FAERS Safety Report 5602631-X (Version None)
Quarter: 2008Q1

REPORT INFORMATION
  Report Type: 
  Country: None (occurrence: None)
  Receive Date: 20080125
  Receipt Date: 20071121
  Transmission Date: 20080703
  Serious: Yes (Other)
  Sender: FDA-Public Use
  Company Number: JP-ROCHE-533625

PATIENT
  Age: 13 Year
  Sex: Male
  Weight: 35 kg

DRUGS (5)
  1. TAMIFLU [Suspect]
     Route: 048
     Dates: start: 20060201, end: 20060201
  2. TAMIFLU [Suspect]
     Dosage: DOSE INCREASED
     Route: 048
     Dates: start: 20060202, end: 20060202
  3. TAMIFLU [Suspect]
     Dosage: DOSE DECREASED
     Route: 048
     Dates: start: 20060203
  4. CHLOPHEDRIN S [Concomitant]
     Route: 048
     Dates: start: 20060201, end: 20060204
  5. HERBAL EXTRACTS NOS [Concomitant]
     Dosage: DRUG:SAIKO-KEISHO-TO
     Route: 048
     Dates: start: 20060201, end: 20060204

REACTIONS (1)
  - ABNORMAL BEHAVIOUR [None]
